FAERS Safety Report 4335867-9 (Version None)
Quarter: 2004Q2

REPORT INFORMATION
  Report Type: 
  Country: None (occurrence: None)
  Receive Date: 20040405
  Receipt Date: 20040325
  Transmission Date: 20050107
  Serious: Yes (Other)
  Sender: FDA-Public Use
  Company Number: CIP04000650

PATIENT
  Age: 39 Year
  Sex: 0

DRUGS (1)
  1. ASACOL [Suspect]
     Indication: INFLAMMATORY BOWEL DISEASE
     Dosage: ORAL
     Route: 048

REACTIONS (9)
  - ACUTE PRERENAL FAILURE [None]
  - BODY MASS INDEX DECREASED [None]
  - DEHYDRATION [None]
  - GLOMERULONEPHRITIS FOCAL [None]
  - NEPHRITIS INTERSTITIAL [None]
  - NEPHROANGIOSCLEROSIS [None]
  - NEPHROLITHIASIS [None]
  - RENAL FAILURE [None]
  - RENAL FAILURE CHRONIC [None]
